FAERS Safety Report 4881999-6 (Version None)
Quarter: 2006Q1

REPORT INFORMATION
  Report Type: 
  Country: None (occurrence: None)
  Receive Date: 20060112
  Receipt Date: 20051229
  Transmission Date: 20060701
  Serious: Yes (Death)
  Sender: FDA-Public Use
  Company Number: 2005S1011267

PATIENT
  Age: 43 Year
  Sex: Male

DRUGS (16)
  1. CLOZAPINE [Suspect]
     Dosage: SEE IMAGE
     Route: 048
     Dates: start: 20040601, end: 20051019
  2. CLOZAPINE [Suspect]
     Dosage: SEE IMAGE
     Route: 048
     Dates: start: 20040601, end: 20051019
  3. BENZTROPINE MESYLATE [Concomitant]
  4. HALOPERIDOL [Concomitant]
  5. HYDROXYZINE [Concomitant]
  6. HYDROCHLORIDE [Concomitant]
  7. GEMFIBROZIL [Concomitant]
  8. DOCUSATE SODIUM [Concomitant]
  9. VALPROATE SODIUM [Concomitant]
  10. LANSOPRAZOLE [Concomitant]
  11. METOPROLOL TARTRATE [Concomitant]
  12. LITHIUM [Concomitant]
  13. ATORVASTATIN CALCIUM [Concomitant]
  14. LEVOTHYROXINE SODIUM [Concomitant]
  15. DIAZEPAM [Concomitant]
  16. PARACETAMOL/HYDROCODONE BITARTRATE [Concomitant]

REACTIONS (1)
  - ANEURYSM [None]
